FAERS Safety Report 19865391 (Version 1)
Quarter: 2021Q3

REPORT INFORMATION
  Report Type: Report from Study
  Country: None (occurrence: NA)
  Receive Date: 20210922
  Receipt Date: 20210922
  Transmission Date: 20211014
  Serious: Yes (Hospitalization)
  Sender: FDA-Public Use
  Company Number: NA-ABBVIE-21K-112-4086423-00

PATIENT
  Sex: Female

DRUGS (1)
  1. HUMIRA [Suspect]
     Active Substance: ADALIMUMAB
     Indication: RHEUMATOID ARTHRITIS
     Route: 058
     Dates: start: 20210701

REACTIONS (4)
  - Illness [Recovering/Resolving]
  - Rheumatoid arthritis [Not Recovered/Not Resolved]
  - Gastric ulcer [Recovering/Resolving]
  - Protein total decreased [Recovering/Resolving]

NARRATIVE: CASE EVENT DATE: 2021
